FAERS Safety Report 18406942 (Version 3)
Quarter: 2020Q4

REPORT INFORMATION
  Report Type: Spontaneous
  Country: TR (occurrence: TR)
  Receive Date: 20201020
  Receipt Date: 20201111
  Transmission Date: 20210114
  Serious: Yes (Death, Life-Threatening, Hospitalization, Other)
  Sender: FDA-Public Use
  Company Number: TR-ABBVIE-20K-161-3616552-00

PATIENT
  Age: 48 Year
  Sex: Male
  Weight: 73 kg

DRUGS (5)
  1. VENCLYXTO [Suspect]
     Active Substance: VENETOCLAX
     Indication: MANTLE CELL LYMPHOMA
     Route: 048
     Dates: start: 20201007, end: 20201013
  2. LANSOR [Concomitant]
     Active Substance: LANSOPRAZOLE
     Indication: PROPHYLAXIS
     Route: 048
     Dates: start: 20201007
  3. VENCLYXTO [Suspect]
     Active Substance: VENETOCLAX
     Route: 048
     Dates: start: 20201014, end: 202010
  4. URIKOLIZ [Concomitant]
     Active Substance: ALLOPURINOL
     Indication: NAUSEA
     Route: 048
     Dates: start: 20201007
  5. VENCLYXTO [Suspect]
     Active Substance: VENETOCLAX
     Route: 048
     Dates: start: 202010

REACTIONS (7)
  - Chest pain [Recovered/Resolved]
  - Off label use [Not Recovered/Not Resolved]
  - Myocardial infarction [Fatal]
  - COVID-19 [Unknown]
  - Troponin increased [Not Recovered/Not Resolved]
  - Ventricular tachycardia [Recovered/Resolved]
  - Troponin increased [Recovered/Resolved]

NARRATIVE: CASE EVENT DATE: 202010
